FAERS Safety Report 15777169 (Version 1)
Quarter: 2018Q4

REPORT INFORMATION
  Report Type: Spontaneous
  Country: US (occurrence: US)
  Receive Date: 20181226
  Receipt Date: 20181226
  Transmission Date: 20190205
  Serious: No
  Sender: FDA-Public Use
  Company Number: None

PATIENT

DRUGS (2)
  1. METFORMIN 500MG [Suspect]
     Active Substance: METFORMIN HYDROCHLORIDE
  2. METRONIDAZOLE 500MG [Suspect]
     Active Substance: METRONIDAZOLE

REACTIONS (5)
  - Alcohol use [None]
  - Product dispensing error [None]
  - Malaise [None]
  - Alcohol interaction [None]
  - Wrong product administered [None]
